FAERS Safety Report 19115358 (Version 1)
Quarter: 2021Q2

REPORT INFORMATION
  Report Type: Report from Study
  Country: US (occurrence: US)
  Receive Date: 20210409
  Receipt Date: 20210409
  Transmission Date: 20210717
  Serious: Yes (Other)
  Sender: FDA-Public Use
  Company Number: US-JAZZ-2017-US-013309

PATIENT
  Sex: Male

DRUGS (15)
  1. XYREM [Suspect]
     Active Substance: SODIUM OXYBATE
     Indication: SOMNOLENCE
     Dosage: 2.25 G, BID
     Route: 048
     Dates: start: 201107, end: 201107
  2. ADDERALL [Concomitant]
     Active Substance: AMPHETAMINE ASPARTATE\AMPHETAMINE SULFATE\DEXTROAMPHETAMINE SACCHARATE\DEXTROAMPHETAMINE SULFATE
  3. NAPROXEN. [Concomitant]
     Active Substance: NAPROXEN
  4. ALLOPURINOL. [Concomitant]
     Active Substance: ALLOPURINOL
  5. XYREM [Suspect]
     Active Substance: SODIUM OXYBATE
     Dosage: 6 G, QD (FIRST DOSE)
     Route: 048
     Dates: start: 201205
  6. CELEBREX [Concomitant]
     Active Substance: CELECOXIB
  7. PANTOPRAZOLE SODIUM. [Concomitant]
     Active Substance: PANTOPRAZOLE SODIUM
  8. PROTONIX                           /00661201/ [Concomitant]
     Active Substance: OMEPRAZOLE
  9. XYREM [Suspect]
     Active Substance: SODIUM OXYBATE
     Dosage: DOSE ADJUSMENTS
     Route: 048
     Dates: start: 201107, end: 201205
  10. TRAZODONE [Concomitant]
     Active Substance: TRAZODONE HYDROCHLORIDE
  11. XYREM [Suspect]
     Active Substance: SODIUM OXYBATE
     Dosage: 4.5 G, QD (SECOND DOSE)
     Route: 048
     Dates: start: 201205
  12. AMBIEN [Concomitant]
     Active Substance: ZOLPIDEM TARTRATE
  13. LISINOPRIL. [Concomitant]
     Active Substance: LISINOPRIL
  14. TRAMADOL. [Concomitant]
     Active Substance: TRAMADOL
  15. XANAX [Concomitant]
     Active Substance: ALPRAZOLAM

REACTIONS (3)
  - Arthralgia [Unknown]
  - Hip arthroplasty [Unknown]
  - Abdominal pain upper [Unknown]

NARRATIVE: CASE EVENT DATE: 2012
